FAERS Safety Report 9122538 (Version 1)
Quarter: 2013Q1

REPORT INFORMATION
  Report Type: Spontaneous
  Country: MA (occurrence: MA)
  Receive Date: 20130114
  Receipt Date: 20130114
  Transmission Date: 20140127
  Serious: Yes (Other)
  Sender: FDA-Public Use
  Company Number: MA-PFIZER INC-2013012884

PATIENT
  Sex: 0

DRUGS (1)
  1. AROMASIN [Suspect]
     Dosage: 25 MG, UNK

REACTIONS (1)
  - Hepatotoxicity [Unknown]
